FAERS Safety Report 25139818 (Version 1)
Quarter: 2025Q1

REPORT INFORMATION
  Report Type: Spontaneous
  Country: FR (occurrence: FR)
  Receive Date: 20250331
  Receipt Date: 20250331
  Transmission Date: 20250409
  Serious: Yes (Death, Hospitalization, Other)
  Sender: ALEXION PHARMACEUTICALS
  Company Number: FR-AstraZeneca-CH-00801664A

PATIENT

DRUGS (19)
  1. DAPAGLIFLOZIN [Suspect]
     Active Substance: DAPAGLIFLOZIN
     Indication: Type 2 diabetes mellitus
     Route: 065
  2. APIXABAN [Suspect]
     Active Substance: APIXABAN
     Dosage: 5 MILLIGRAM, BID
     Route: 065
  3. BISOPROLOL [Suspect]
     Active Substance: BISOPROLOL
     Dosage: 2.5 MILLIGRAM, BID
     Route: 065
  4. AMIODARONE [Suspect]
     Active Substance: AMIODARONE
     Dosage: 200 MILLIGRAM, QD
     Route: 065
  5. ACETAMINOPHEN [Suspect]
     Active Substance: ACETAMINOPHEN
  6. ESOMEPRAZOLE [Suspect]
     Active Substance: ESOMEPRAZOLE
  7. DESLORATADINE [Suspect]
     Active Substance: DESLORATADINE
  8. VORTIOXETINE [Suspect]
     Active Substance: VORTIOXETINE
  9. IRBESARTAN [Suspect]
     Active Substance: IRBESARTAN
  10. HYDROCHLOROTHIAZIDE [Suspect]
     Active Substance: HYDROCHLOROTHIAZIDE
  11. MIANSERIN HYDROCHLORIDE [Suspect]
     Active Substance: MIANSERIN HYDROCHLORIDE
  12. VALPROMIDE [Suspect]
     Active Substance: VALPROMIDE
  13. LEVOTHYROXINE SODIUM [Suspect]
     Active Substance: LEVOTHYROXINE SODIUM
  14. FLUTICASONE FUROATE [Suspect]
     Active Substance: FLUTICASONE FUROATE
  15. VILANTEROL [Suspect]
     Active Substance: VILANTEROL
  16. FOLIC ACID [Suspect]
     Active Substance: FOLIC ACID
  17. METFORMIN [Suspect]
     Active Substance: METFORMIN HYDROCHLORIDE
  18. ASCORBIC ACID [Suspect]
     Active Substance: ASCORBIC ACID
  19. CHOLECALCIFEROL [Suspect]
     Active Substance: CHOLECALCIFEROL

REACTIONS (2)
  - Fournier^s gangrene [Fatal]
  - Septic shock [Fatal]
